FAERS Safety Report 9125130 (Version 1)
Quarter: 2013Q1

REPORT INFORMATION
  Report Type: Spontaneous
  Country: GB (occurrence: GB)
  Receive Date: 20130117
  Receipt Date: 20130117
  Transmission Date: 20140127
  Serious: Yes (Other)
  Sender: FDA-Public Use
  Company Number: GB-PFIZER INC-2013017354

PATIENT
  Age: 41 Year
  Sex: Female
  Weight: 75 kg

DRUGS (3)
  1. CHAMPIX [Suspect]
     Dosage: UNK
     Route: 048
  2. SIMVASTATIN [Concomitant]
     Dosage: UNK
  3. GLUCOSAMINE [Concomitant]
     Dosage: UNK

REACTIONS (1)
  - Bartholin^s abscess [Not Recovered/Not Resolved]
